FAERS Safety Report 6618797-9 (Version None)
Quarter: 2010Q1

REPORT INFORMATION
  Report Type: 
  Country: None (occurrence: None)
  Receive Date: 20100308
  Receipt Date: 20100224
  Transmission Date: 20100710
  Serious: Yes (Other)
  Sender: FDA-Public Use
  Company Number: HR-WYE-H13908410

PATIENT
  Age: 55 Year
  Sex: Male

DRUGS (5)
  1. CONTROLOC [Suspect]
     Indication: GASTRITIS EROSIVE
     Route: 048
     Dates: start: 20070101
  2. CONTROLOC [Suspect]
     Indication: GASTROOESOPHAGEAL REFLUX DISEASE
     Dosage: DISCONTINUED FOR SHORT INTERVALS ON UNSPECIFIED DATES
     Route: 048
  3. CONTROLOC [Suspect]
     Indication: HIATUS HERNIA
     Route: 048
     Dates: end: 20091201
  4. RYTMONORM [Concomitant]
     Indication: ARRHYTHMIA
     Route: 048
  5. BISOPROLOL FUMARATE [Concomitant]
     Indication: HYPERTENSION
     Route: 048

REACTIONS (2)
  - GASTRIC MUCOSAL HYPERTROPHY [None]
  - GASTRIC POLYPS [None]
